FAERS Safety Report 23132367 (Version 4)
Quarter: 2024Q1

REPORT INFORMATION
  Report Type: Spontaneous
  Country: US (occurrence: US)
  Receive Date: 20231101
  Receipt Date: 20240104
  Transmission Date: 20240410
  Serious: No
  Sender: FDA-Public Use
  Company Number: US-JNJFOC-20231071887

PATIENT
  Age: 80 Year
  Sex: Male

DRUGS (4)
  1. OPSUMIT [Suspect]
     Active Substance: MACITENTAN
     Indication: Pulmonary arterial hypertension
     Route: 048
     Dates: start: 20231009
  2. OFEV [Concomitant]
     Active Substance: NINTEDANIB
  3. ADEMPAS [Concomitant]
     Active Substance: RIOCIGUAT
  4. CELLCEPT [Concomitant]
     Active Substance: MYCOPHENOLATE MOFETIL

REACTIONS (5)
  - Illness [Unknown]
  - Abdominal pain upper [Unknown]
  - Malaise [Unknown]
  - Vomiting [Unknown]
  - Drug intolerance [Unknown]
